FAERS Safety Report 13081647 (Version 2)
Quarter: 2017Q1

REPORT INFORMATION
  Report Type: Spontaneous
  Country: US (occurrence: US)
  Receive Date: 20170103
  Receipt Date: 20170203
  Transmission Date: 20170428
  Serious: Yes (Hospitalization)
  Sender: FDA-Public Use
  Company Number: US-BAYER-2017-000942

PATIENT
  Age: 40 Year
  Sex: Female

DRUGS (2)
  1. MIRENA [Suspect]
     Active Substance: LEVONORGESTREL
     Indication: CONTRACEPTION
     Dosage: 20 MCG/24HR, CONT
     Route: 015
     Dates: start: 20100115, end: 20150414
  2. ESTROGEN NOS [Concomitant]
     Active Substance: ESTROGENS

REACTIONS (5)
  - Uterine perforation [None]
  - Anxiety [None]
  - Device use issue [None]
  - Device issue [None]
  - Device dislocation [None]

NARRATIVE: CASE EVENT DATE: 201501
